FAERS Safety Report 6088035-7 (Version None)
Quarter: 2009Q1

REPORT INFORMATION
  Report Type: 
  Country: None (occurrence: None)
  Receive Date: 20090223
  Receipt Date: 20090213
  Transmission Date: 20090719
  Serious: Yes (Other)
  Sender: FDA-Public Use
  Company Number: US-ALLERGAN-0901970US

PATIENT
  Sex: Female

DRUGS (1)
  1. BOTOX COSMETIC [Suspect]
     Indication: SKIN WRINKLING
     Dosage: UNK, SINGLE
     Route: 030
     Dates: start: 20081219, end: 20081219

REACTIONS (5)
  - EYELID PTOSIS [None]
  - FACIAL PARESIS [None]
  - HEADACHE [None]
  - INJECTION SITE PAIN [None]
  - PHOTOPHOBIA [None]
